FAERS Safety Report 16524985 (Version 1)
Quarter: 2019Q3

REPORT INFORMATION
  Report Type: Report from Study
  Country: JP (occurrence: JP)
  Receive Date: 20190703
  Receipt Date: 20190703
  Transmission Date: 20191004
  Serious: Yes (Other)
  Sender: FDA-Public Use
  Company Number: JP-JNJFOC-20190701533

PATIENT
  Age: 66 Year
  Sex: Female

DRUGS (8)
  1. PREZISTANAIVE [Suspect]
     Active Substance: DARUNAVIR
     Indication: HIV INFECTION
     Dosage: DARUNAVIR ETHANOLATE 400 MG
     Route: 048
     Dates: start: 20130708
  2. NORVIR [Suspect]
     Active Substance: RITONAVIR
     Indication: HIV INFECTION
     Dosage: PERORAL MEDICINE
     Route: 048
     Dates: start: 20090126, end: 20091220
  3. DOGMATYL [Concomitant]
     Active Substance: SULPIRIDE
     Indication: DEPRESSION
     Route: 065
     Dates: start: 20091109, end: 20180508
  4. FOSAMAC 35MG [Concomitant]
     Indication: OSTEOPOROSIS
     Route: 048
     Dates: start: 20130708
  5. NORVIR [Suspect]
     Active Substance: RITONAVIR
     Dosage: PERORAL MEDICINE
     Route: 048
     Dates: start: 20130608
  6. EDIROL [Concomitant]
     Active Substance: ELDECALCITOL
     Indication: OSTEOPOROSIS
     Dosage: ELDECALCITOL
     Route: 048
     Dates: start: 20130121
  7. WYPAX [Concomitant]
     Active Substance: LORAZEPAM
     Indication: DEPRESSION
     Route: 048
     Dates: start: 20111112, end: 20180410
  8. TIVICAY [Suspect]
     Active Substance: DOLUTEGRAVIR SODIUM
     Indication: HIV INFECTION
     Route: 048
     Dates: start: 20141130

REACTIONS (1)
  - Pneumonia [Recovering/Resolving]

NARRATIVE: CASE EVENT DATE: 201811
